FAERS Safety Report 9492463 (Version 1)
Quarter: 2013Q3

REPORT INFORMATION
  Report Type: Spontaneous
  Country: US (occurrence: US)
  Receive Date: 20130830
  Receipt Date: 20130830
  Transmission Date: 20140515
  Serious: Yes (Hospitalization)
  Sender: FDA-Public Use
  Company Number: US-009507513-1308USA013620

PATIENT
  Sex: Male

DRUGS (1)
  1. FELBATOL [Suspect]
     Indication: EPILEPSY
     Dosage: UNK
     Route: 048
     Dates: start: 1990

REACTIONS (5)
  - Abnormal loss of weight [Unknown]
  - Vomiting [Unknown]
  - Abdominal pain upper [Unknown]
  - Diplopia [Unknown]
  - Nausea [Unknown]
